FAERS Safety Report 26009408 (Version 1)
Quarter: 2025Q4

REPORT INFORMATION
  Report Type: Spontaneous
  Country: BR (occurrence: BR)
  Receive Date: 20251107
  Receipt Date: 20251107
  Transmission Date: 20260117
  Serious: Yes (Death)
  Sender: BOEHRINGER INGELHEIM
  Company Number: BR-BoehringerIngelheim-2025-BI-105989

PATIENT
  Age: 75 Year
  Weight: 70 kg

DRUGS (2)
  1. NINTEDANIB [Suspect]
     Active Substance: NINTEDANIB
     Indication: Idiopathic pulmonary fibrosis
     Dates: start: 202107, end: 202203
  2. NINTEDANIB [Suspect]
     Active Substance: NINTEDANIB
     Dosage: DOSE ADJUSTMENT
     Dates: start: 202203, end: 202302

REACTIONS (5)
  - Death [Fatal]
  - Diarrhoea [Unknown]
  - Decreased appetite [Unknown]
  - Impaired quality of life [Unknown]
  - Weight decreased [Unknown]

NARRATIVE: CASE EVENT DATE: 20210101
